FAERS Safety Report 18668600 (Version 1)
Quarter: 2020Q4

REPORT INFORMATION
  Report Type: Spontaneous
  Country: US (occurrence: US)
  Receive Date: 20201225
  Receipt Date: 20201225
  Transmission Date: 20210114
  Serious: No
  Sender: FDA-Public Use
  Company Number: None

PATIENT
  Age: 55 Year
  Sex: Female
  Weight: 124.65 kg

DRUGS (29)
  1. CPAP [Concomitant]
     Active Substance: DEVICE
  2. AMBIEN [Concomitant]
     Active Substance: ZOLPIDEM TARTRATE
  3. MORPHINE [Concomitant]
     Active Substance: MORPHINE
  4. MONTELUKAST [Concomitant]
     Active Substance: MONTELUKAST SODIUM
  5. L-THYROXINE [Concomitant]
     Active Substance: LEVOTHYROXINE
  6. TRAZODONE [Concomitant]
     Active Substance: TRAZODONE HYDROCHLORIDE
  7. ZOFRAN [Concomitant]
     Active Substance: ONDANSETRON HYDROCHLORIDE
  8. FOLIC ACID. [Concomitant]
     Active Substance: FOLIC ACID
  9. DEPAKOTE [Concomitant]
     Active Substance: DIVALPROEX SODIUM
  10. VELAFAXINE [Concomitant]
     Active Substance: VENLAFAXINE HYDROCHLORIDE
  11. ADVAIR HFA [Concomitant]
     Active Substance: FLUTICASONE PROPIONATE\SALMETEROL XINAFOATE
  12. COLACE [Concomitant]
     Active Substance: DOCUSATE SODIUM
  13. VAGISIL ANTI ITCH MAXIMUM STRENGTH [Suspect]
     Active Substance: BENZOCAINE\RESORCINOL
     Indication: DERMATITIS
     Dosage: ?          QUANTITY:1 OUNCE(S);?
     Route: 061
     Dates: start: 20201225, end: 20201225
  14. PREDNISONE. [Concomitant]
     Active Substance: PREDNISONE
  15. VYVANSE [Concomitant]
     Active Substance: LISDEXAMFETAMINE DIMESYLATE
  16. YEAST INFECTION TREATMENTS [Concomitant]
  17. WALKER AND WHEELCHAIR [Concomitant]
  18. ALBUTEROL. [Concomitant]
     Active Substance: ALBUTEROL
  19. NYSTATIN. [Concomitant]
     Active Substance: NYSTATIN
  20. VITAMIN D3 [Concomitant]
     Active Substance: CHOLECALCIFEROL
  21. VITAMIN B COMPLEX [Concomitant]
     Active Substance: CYANOCOBALAMIN\DEXPANTHENOL\NIACINAMIDE\PYRIDOXINE HYDROCHLORIDE\RIBOFLAVIN 5^-PHOSPHATE SODIUM\THIAMINE HYDROCHLORIDE\VITAMIN B COMPLEX
  22. SUMATRIPTIN [Concomitant]
  23. KEFLEX [Concomitant]
     Active Substance: CEPHALEXIN
  24. ASPIRIN 81MG [Concomitant]
     Active Substance: ASPIRIN
  25. NEBULIZER [Concomitant]
     Active Substance: DEVICE
  26. DIVALPROEX [Concomitant]
     Active Substance: DIVALPROEX SODIUM
  27. O2 [Concomitant]
     Active Substance: OXYGEN
  28. FLUCONAZOLE. [Concomitant]
     Active Substance: FLUCONAZOLE
  29. IPRATROPIUM [Concomitant]
     Active Substance: IPRATROPIUM

REACTIONS (3)
  - Burning sensation [None]
  - Product quality issue [None]
  - Product physical consistency issue [None]

NARRATIVE: CASE EVENT DATE: 20201225
